FAERS Safety Report 18544614 (Version 1)
Quarter: 2020Q4

REPORT INFORMATION
  Report Type: Spontaneous
  Country: US (occurrence: US)
  Receive Date: 20201124
  Receipt Date: 20201124
  Transmission Date: 20210114
  Serious: Yes (Death)
  Sender: FDA-Public Use
  Company Number: None

PATIENT
  Sex: Female

DRUGS (7)
  1. NORCO [Suspect]
     Active Substance: ACETAMINOPHEN\HYDROCODONE BITARTRATE
  2. TASIGNA [Suspect]
     Active Substance: NILOTINIB
     Indication: CHRONIC MYELOID LEUKAEMIA
     Dosage: ?          OTHER DOSE:2 CAPS;?
     Route: 048
     Dates: start: 20190719, end: 202011
  3. CHANTIX [Suspect]
     Active Substance: VARENICLINE TARTRATE
  4. OZEMPIC [Suspect]
     Active Substance: SEMAGLUTIDE
  5. ALPRAZOLAM. [Suspect]
     Active Substance: ALPRAZOLAM
  6. DOCUSATE SODIQUE [Concomitant]
     Active Substance: DOCUSATE SODIUM
  7. HYDROCHLOROT [Suspect]
     Active Substance: HYDROCHLOROTHIAZIDE

REACTIONS (1)
  - Death [None]
